FAERS Safety Report 6836410-2 (Version None)
Quarter: 2010Q3

REPORT INFORMATION
  Report Type: 
  Country: None (occurrence: None)
  Receive Date: 20100708
  Receipt Date: 20100630
  Transmission Date: 20110219
  Serious: Yes (Hospitalization, Other)
  Sender: FDA-Public Use
  Company Number: TPA2010A03891

PATIENT
  Sex: Male

DRUGS (2)
  1. ACTOS [Suspect]
     Indication: TYPE 2 DIABETES MELLITUS
     Dosage: 30MG, ORAL
     Route: 048
     Dates: start: 20080101
  2. AVANDIA [Suspect]
     Indication: TYPE 2 DIABETES MELLITUS
     Dosage: 4 MG, 2 IN 1 D, ORAL
     Route: 048
     Dates: start: 20080101

REACTIONS (6)
  - APPARENT DEATH [None]
  - BLOOD GLUCOSE DECREASED [None]
  - CYSTITIS [None]
  - DIABETIC COMA [None]
  - LIVER DISORDER [None]
  - LOSS OF CONSCIOUSNESS [None]
